FAERS Safety Report 16326530 (Version 1)
Quarter: 2019Q2

REPORT INFORMATION
  Report Type: Report from Study
  Country: US (occurrence: US)
  Receive Date: 20190517
  Receipt Date: 20190517
  Transmission Date: 20190711
  Serious: Yes (Other)
  Sender: FDA-Public Use
  Company Number: US-GILEAD-2019-0407966

PATIENT
  Age: 84 Year
  Sex: Male

DRUGS (4)
  1. AMBRISENTAN [Suspect]
     Active Substance: AMBRISENTAN
     Indication: PRODUCT USED FOR UNKNOWN INDICATION
     Dosage: 10 MG, QD
     Route: 048
     Dates: start: 20160217
  2. UPTRAVI [Concomitant]
     Active Substance: SELEXIPAG
  3. ELIQUIS [Concomitant]
     Active Substance: APIXABAN
  4. TADALAFIL. [Concomitant]
     Active Substance: TADALAFIL

REACTIONS (4)
  - Lymphoedema [Recovered/Resolved]
  - Unevaluable event [Recovered/Resolved]
  - Swelling [Recovered/Resolved]
  - Infection [Recovered/Resolved]
